FAERS Safety Report 7080666-0 (Version None)
Quarter: 2010Q4

REPORT INFORMATION
  Report Type: 
  Country: None (occurrence: None)
  Receive Date: 20101103
  Receipt Date: 20101020
  Transmission Date: 20110411
  Serious: Yes (Hospitalization)
  Sender: FDA-Public Use
  Company Number: AT-ASTRAZENECA-2010SE47091

PATIENT
  Age: 72 Year
  Sex: Female
  Weight: 103 kg

DRUGS (9)
  1. ATACAND [Suspect]
     Route: 048
  2. ATACAND HCT [Suspect]
     Dosage: 8 MG
     Route: 048
     Dates: start: 20100613
  3. NEUROTOP RET [Suspect]
     Dates: start: 20100608, end: 20100609
  4. NEUROTOP RET [Suspect]
     Dates: start: 20100610, end: 20100614
  5. NEUROTOP RET [Suspect]
     Dates: start: 20100615, end: 20100623
  6. SEROQUEL [Concomitant]
     Dates: start: 20100615, end: 20100719
  7. LASIX [Concomitant]
     Dates: start: 20100610
  8. FLOXAPEN [Concomitant]
  9. ABILIFY [Concomitant]
     Dates: start: 20100620, end: 20100719

REACTIONS (2)
  - HYPERCHOLESTEROLAEMIA [None]
  - HYPONATRAEMIA [None]
